FAERS Safety Report 8407394-0 (Version None)
Quarter: 2012Q2

REPORT INFORMATION
  Report Type: 
  Country: None (occurrence: None)
  Receive Date: 20120529
  Receipt Date: 20120523
  Transmission Date: 20120825
  Serious: Yes (Hospitalization)
  Sender: FDA-Public Use
  Company Number: 2012-001961

PATIENT
  Age: 67 Year
  Sex: Female

DRUGS (1)
  1. ACTONEL [Suspect]
     Indication: OSTEOPOROSIS POSTMENOPAUSAL
     Dosage: 75 MG ONCE MONTHLY, ORAL
     Route: 048
     Dates: start: 20100101, end: 20120502

REACTIONS (8)
  - BLOOD ALBUMIN DECREASED [None]
  - PLATELET COUNT INCREASED [None]
  - MUSCULOSKELETAL PAIN [None]
  - HYPERAESTHESIA [None]
  - TREMOR [None]
  - BLOOD CREATININE DECREASED [None]
  - MYALGIA [None]
  - ELECTROPHORESIS PROTEIN ABNORMAL [None]
